FAERS Safety Report 4725530-4 (Version None)
Quarter: 2005Q3

REPORT INFORMATION
  Report Type: 
  Country: None (occurrence: None)
  Receive Date: 20050722
  Receipt Date: 20050722
  Transmission Date: 20060218
  Serious: Yes (Hospitalization)
  Sender: FDA-Public Use
  Company Number: None

PATIENT
  Age: 57 Year
  Sex: Female

DRUGS (4)
  1. VEPESID [Suspect]
     Indication: NON-HODGKIN'S LYMPHOMA
     Dosage: 199 MG INTRAVENOUS
     Route: 042
  2. PARAPLATIN [Suspect]
     Indication: NON-HODGKIN'S LYMPHOMA
     Dosage: 605 MG, INTRAVENOUS
     Route: 042
  3. IFEX [Suspect]
     Indication: NON-HODGKIN'S LYMPHOMA
     Dosage: 9950 MG, INTRAVENOUS
  4. RITUXAN [Suspect]
     Indication: NON-HODGKIN'S LYMPHOMA
     Dosage: 746 MG, INTRAVENOUS
     Route: 042

REACTIONS (4)
  - BLOOD PRESSURE DECREASED [None]
  - BODY TEMPERATURE DECREASED [None]
  - HEART RATE INCREASED [None]
  - PANCYTOPENIA [None]
